FAERS Safety Report 22259091 (Version 2)
Quarter: 2023Q2

REPORT INFORMATION
  Report Type: Spontaneous
  Country: AU (occurrence: None)
  Receive Date: 20230427
  Receipt Date: 20230503
  Transmission Date: 20230722
  Serious: Yes (Other)
  Sender: FDA-Public Use
  Company Number: AU-ROCHE-3336426

PATIENT
  Age: 69 Year
  Sex: Female

DRUGS (9)
  1. RITUXIMAB [Suspect]
     Active Substance: RITUXIMAB
     Indication: Mantle cell lymphoma refractory
     Route: 065
     Dates: start: 20210730
  2. CYCLOPHOSPHAMIDE [Suspect]
     Active Substance: CYCLOPHOSPHAMIDE
     Indication: Mantle cell lymphoma refractory
     Route: 065
     Dates: start: 20210730
  3. DOXORUBICIN [Suspect]
     Active Substance: DOXORUBICIN
     Indication: Mantle cell lymphoma refractory
     Route: 065
     Dates: start: 20210730
  4. VINCRISTINE [Suspect]
     Active Substance: VINCRISTINE
     Indication: Mantle cell lymphoma refractory
     Route: 065
     Dates: start: 20210730
  5. PREDNISOLONE [Suspect]
     Active Substance: PREDNISOLONE
     Indication: Mantle cell lymphoma refractory
     Route: 065
     Dates: start: 20210730
  6. DEXAMETHASONE [Suspect]
     Active Substance: DEXAMETHASONE
     Indication: Mantle cell lymphoma refractory
     Route: 065
     Dates: start: 20210730
  7. CYTARABINE [Suspect]
     Active Substance: CYTARABINE
     Indication: Mantle cell lymphoma refractory
     Route: 065
     Dates: start: 20210730
  8. CISPLATIN [Suspect]
     Active Substance: CISPLATIN
     Indication: Mantle cell lymphoma refractory
     Route: 065
     Dates: start: 20210730
  9. ZANUBRUTINIB [Suspect]
     Active Substance: ZANUBRUTINIB
     Indication: Mantle cell lymphoma refractory
     Route: 065
     Dates: start: 20210730

REACTIONS (5)
  - Mantle cell lymphoma recurrent [Unknown]
  - Abdominal pain [Unknown]
  - Ureteric obstruction [Unknown]
  - Hydronephrosis [Unknown]
  - Disease progression [Unknown]
